FAERS Safety Report 23034373 (Version 1)
Quarter: 2023Q4

REPORT INFORMATION
  Report Type: Spontaneous
  Country: TR (occurrence: TR)
  Receive Date: 20231005
  Receipt Date: 20231005
  Transmission Date: 20240110
  Serious: Yes (Other)
  Sender: FDA-Public Use
  Company Number: TR-SUN PHARMACEUTICAL INDUSTRIES LTD-2023R1-410533

PATIENT
  Age: 41 Year
  Sex: Male

DRUGS (1)
  1. CODEINE [Suspect]
     Active Substance: CODEINE
     Indication: Product used for unknown indication
     Dosage: UNK (10 MG)
     Route: 065

REACTIONS (6)
  - Drug abuse [Unknown]
  - Insomnia [Unknown]
  - Palpitations [Unknown]
  - Restlessness [Unknown]
  - Hyperhidrosis [Unknown]
  - Aggression [Unknown]
